FAERS Safety Report 7573811-1 (Version None)
Quarter: 2011Q2

REPORT INFORMATION
  Report Type: 
  Country: None (occurrence: None)
  Receive Date: 20110525
  Receipt Date: 20110223
  Transmission Date: 20111010
  Serious: No
  Sender: FDA-Public Use
  Company Number: 324123

PATIENT
  Age: 40 Year
  Sex: Female

DRUGS (2)
  1. LISINOPRIL [Concomitant]
  2. VICTOZA [Suspect]
     Indication: TYPE 2 DIABETES MELLITUS
     Dosage: 1.2 MG, QD, SUBCUTANEOUS, 0.6 MG, QD

REACTIONS (3)
  - NAUSEA [None]
  - VOMITING [None]
  - INJECTION SITE PAIN [None]
